FAERS Safety Report 8936358 (Version 2)
Quarter: 2013Q1

REPORT INFORMATION
  Report Type: Report from Study
  Country: JP (occurrence: JP)
  Receive Date: 20121130
  Receipt Date: 20130102
  Transmission Date: 20140127
  Serious: Yes (Hospitalization)
  Sender: FDA-Public Use
  Company Number: JP-VERTEX PHARMACEUTICAL INC.-2012-025300

PATIENT
  Age: 49 Year
  Sex: Male

DRUGS (8)
  1. VX-950 (TELAPREVIR) [Suspect]
     Indication: CHRONIC HEPATITIS C
     Dosage: 2250 MG, QD
     Route: 048
     Dates: start: 20120510, end: 20120803
  2. ALLOPURINOL [Suspect]
     Indication: CHRONIC HEPATITIS C
     Dosage: 200 MG, QD
     Route: 048
     Dates: start: 20120512, end: 20120821
  3. REBETOL [Concomitant]
     Dosage: 1000 MG, QD
     Route: 048
     Dates: start: 20120510, end: 20120731
  4. REBETOL [Concomitant]
     Dosage: UNK
     Route: 048
     Dates: end: 20120827
  5. PEGINTERFERON ALFA-2B [Concomitant]
     Dosage: 1.5 ?G/KG, QW
     Route: 058
     Dates: start: 20120510, end: 20120827
  6. LIVALO [Concomitant]
     Dosage: 1 DF, QD
     Route: 048
  7. BLOPRESS [Concomitant]
     Dosage: 8 DF, QD
     Route: 048
     Dates: start: 201204
  8. CALONAL [Concomitant]
     Route: 048

REACTIONS (1)
  - Drug eruption [Recovered/Resolved]
